FAERS Safety Report 15652418 (Version 1)
Quarter: 2018Q4

REPORT INFORMATION
  Report Type: Spontaneous
  Country: US (occurrence: US)
  Receive Date: 20181123
  Receipt Date: 20181123
  Transmission Date: 20190205
  Serious: No
  Sender: FDA-Public Use
  Company Number: US-FOUNDATIONCONSUMERHC-2018-US-014782

PATIENT
  Age: 34 Year
  Sex: Female
  Weight: 59.87 kg

DRUGS (3)
  1. AUGMENTIN/AMOXICILLIN [Concomitant]
     Route: 048
     Dates: start: 20180824
  2. AFTERA [Suspect]
     Active Substance: LEVONORGESTREL
     Indication: POST COITAL CONTRACEPTION
     Dosage: 1.5MG
     Route: 048
     Dates: start: 20180826, end: 20180826
  3. UNSPECIFIED VITAMINS [Concomitant]
     Active Substance: VITAMINS
     Route: 048

REACTIONS (2)
  - Dysmenorrhoea [Not Recovered/Not Resolved]
  - Abdominal distension [Not Recovered/Not Resolved]

NARRATIVE: CASE EVENT DATE: 20180827
